FAERS Safety Report 6607724-6 (Version None)
Quarter: 2010Q1

REPORT INFORMATION
  Report Type: 
  Country: None (occurrence: None)
  Receive Date: 20100301
  Receipt Date: 20100223
  Transmission Date: 20100710
  Serious: Yes (Hospitalization)
  Sender: FDA-Public Use
  Company Number: US-JNJFOC-20091202333

PATIENT
  Sex: Male
  Weight: 27.9 kg

DRUGS (7)
  1. INFLIXIMAB [Suspect]
     Indication: INFLAMMATORY BOWEL DISEASE
     Route: 042
     Dates: start: 20090417
  2. CYANOCOBALAMIN [Concomitant]
  3. ANTIBIOTICS [Concomitant]
     Indication: INFLAMMATORY BOWEL DISEASE
  4. FISH OIL [Concomitant]
  5. VITAMIN C [Concomitant]
  6. MULTI-VITAMINS [Concomitant]
  7. NEXIUM [Concomitant]

REACTIONS (2)
  - PERIRECTAL ABSCESS [None]
  - RECTAL ABSCESS [None]
